FAERS Safety Report 18817065 (Version 1)
Quarter: 2021Q1

REPORT INFORMATION
  Report Type: Spontaneous
  Country: US (occurrence: US)
  Receive Date: 20210201
  Receipt Date: 20210201
  Transmission Date: 20210419
  Serious: Yes (Hospitalization)
  Sender: FDA-Public Use
  Company Number: US-PFIZER INC-2021061946

PATIENT
  Age: 31 Year
  Sex: Male

DRUGS (3)
  1. PACLITAXEL. [Suspect]
     Active Substance: PACLITAXEL
     Indication: DESMOPLASTIC SMALL ROUND CELL TUMOUR
     Dosage: UNK
  2. IRINOTECAN HCL [Suspect]
     Active Substance: IRINOTECAN HYDROCHLORIDE
     Indication: DESMOPLASTIC SMALL ROUND CELL TUMOUR
     Dosage: UNK
  3. CARBOPLATIN. [Suspect]
     Active Substance: CARBOPLATIN
     Indication: DESMOPLASTIC SMALL ROUND CELL TUMOUR
     Dosage: UNK

REACTIONS (2)
  - Neoplasm progression [Unknown]
  - Febrile neutropenia [Unknown]
